FAERS Safety Report 6170107-X (Version None)
Quarter: 2009Q2

REPORT INFORMATION
  Report Type: 
  Country: None (occurrence: None)
  Receive Date: 20090424
  Receipt Date: 20081229
  Transmission Date: 20091009
  Serious: No
  Sender: FDA-Public Use
  Company Number: ALL1-2008-03652

PATIENT
  Sex: Female

DRUGS (2)
  1. VYVANSE [Suspect]
     Dosage: 30 MG, 1X/DAY:QD, ORAL
     Route: 048
  2. ADDERALL XR 5 [Suspect]
     Dosage: 30 MG, 1X/DAY:QD, ORAL
     Route: 048

REACTIONS (1)
  - DRUG INEFFECTIVE [None]
